FAERS Safety Report 10501446 (Version 1)
Quarter: 2014Q4

REPORT INFORMATION
  Report Type: Spontaneous
  Country: US (occurrence: None)
  Receive Date: 20141006
  Receipt Date: 20141006
  Transmission Date: 20150528
  Serious: Yes (Disabling)
  Sender: FDA-Public Use
  Company Number: None

PATIENT
  Age: 54 Year
  Sex: Female
  Weight: 78.93 kg

DRUGS (1)
  1. NITROFURANTOIN. [Suspect]
     Active Substance: NITROFURANTOIN
     Indication: URINARY TRACT INFECTION
     Dosage: 1 PILL TWICE DAILY TAKEN BY MOUTH?1 DOSE
     Route: 048

REACTIONS (10)
  - Vulvovaginal dryness [None]
  - Lung disorder [None]
  - Nausea [None]
  - Dizziness [None]
  - Dry eye [None]
  - Aptyalism [None]
  - Dyspnoea [None]
  - Dry mouth [None]
  - Bronchitis chronic [None]
  - Hypersensitivity [None]

NARRATIVE: CASE EVENT DATE: 20140812
